FAERS Safety Report 23470418 (Version 1)
Quarter: 2024Q1

REPORT INFORMATION
  Report Type: Spontaneous
  Country: BR (occurrence: BR)
  Receive Date: 20240202
  Receipt Date: 20240202
  Transmission Date: 20240410
  Serious: Yes (Other)
  Sender: FDA-Public Use
  Company Number: BR-MEITHEAL-2024MPLIT00013

PATIENT
  Age: 18 Month
  Sex: Female

DRUGS (6)
  1. MELPHALAN HYDROCHLORIDE [Suspect]
     Active Substance: MELPHALAN HYDROCHLORIDE
     Indication: Retinoblastoma
     Route: 013
  2. MELPHALAN HYDROCHLORIDE [Suspect]
     Active Substance: MELPHALAN HYDROCHLORIDE
  3. VINCRISTINE [Concomitant]
     Active Substance: VINCRISTINE
     Dosage: SIX MONTHLY CYCLES
     Route: 031
  4. ETOPOSIDE [Concomitant]
     Active Substance: ETOPOSIDE
     Dosage: SIX MONTHLY CYCLES
     Route: 031
  5. CARBOPLATIN [Concomitant]
     Active Substance: CARBOPLATIN
     Dosage: SIX MONTHLY CYCLES
     Route: 031
  6. TOPOTECAN [Concomitant]
     Active Substance: TOPOTECAN HYDROCHLORIDE
     Route: 031

REACTIONS (1)
  - Retinal toxicity [Recovered/Resolved]
